FAERS Safety Report 5005970-9 (Version None)
Quarter: 2006Q2

REPORT INFORMATION
  Report Type: 
  Country: None (occurrence: None)
  Receive Date: 20060517
  Receipt Date: 20060517
  Transmission Date: 20061013
  Serious: Yes (Death)
  Sender: FDA-Public Use
  Company Number: None

PATIENT
  Sex: Male
  Weight: 69 kg

DRUGS (1)
  1. PENTAMIDINE 300MG AMERICAN PHARMACEUTICAL [Suspect]
     Indication: PNEUMONIA
     Dosage: 210MG DAILY IV DRIP
     Route: 041
     Dates: start: 20060505, end: 20060505

REACTIONS (4)
  - CARDIAC ARREST [None]
  - CARDIO-RESPIRATORY ARREST [None]
  - HYPOTENSION [None]
  - VENTRICULAR FIBRILLATION [None]
